FAERS Safety Report 15372239 (Version 1)
Quarter: 2018Q3

REPORT INFORMATION
  Report Type: Spontaneous
  Country: CH (occurrence: CH)
  Receive Date: 20180911
  Receipt Date: 20180911
  Transmission Date: 20181010
  Serious: Yes (Other)
  Sender: FDA-Public Use
  Company Number: CH-LPDUSPRD-20181662

PATIENT
  Age: 37 Year
  Sex: Female
  Weight: 73.3 kg

DRUGS (1)
  1. FERINJECT [Suspect]
     Active Substance: FERRIC CARBOXYMALTOSE
     Dosage: 500 MG
     Route: 041
     Dates: start: 20180625, end: 20180625

REACTIONS (2)
  - Abdominal pain [Unknown]
  - Inflammation [Unknown]

NARRATIVE: CASE EVENT DATE: 20180625
